FAERS Safety Report 8890631 (Version 2)
Quarter: 2012Q4

REPORT INFORMATION
  Report Type: Report from Study
  Country: CN (occurrence: CN)
  Receive Date: 20121107
  Receipt Date: 20121108
  Transmission Date: 20130627
  Serious: Yes (Death)
  Sender: FDA-Public Use
  Company Number: CN-JNJFOC-20121102165

PATIENT
  Sex: Male
  Weight: 55 kg

DRUGS (2)
  1. SPORANOX [Suspect]
     Indication: PULMONARY MYCOSIS
     Dosage: for first 2 days
     Route: 041
     Dates: start: 20120927
  2. SPORANOX [Suspect]
     Indication: PULMONARY MYCOSIS
     Route: 041
     Dates: end: 20121005

REACTIONS (1)
  - Multi-organ failure [Fatal]
